FAERS Safety Report 16682366 (Version 1)
Quarter: 2019Q3

REPORT INFORMATION
  Report Type: Spontaneous
  Country: US (occurrence: US)
  Receive Date: 20190808
  Receipt Date: 20190808
  Transmission Date: 20191004
  Serious: Yes (Hospitalization)
  Sender: FDA-Public Use
  Company Number: US-PFIZER INC-2019335493

PATIENT
  Age: 5 Year
  Sex: Male

DRUGS (2)
  1. VINCRISTINE SULFATE. [Suspect]
     Active Substance: VINCRISTINE SULFATE
     Indication: MALIGNANT OLIGODENDROGLIOMA
     Dosage: 0.45 MG, UNK (60 ML/24 H USING A PORTABLE INFUSION PUMP)
     Route: 042
  2. CARMUSTINE. [Suspect]
     Active Substance: CARMUSTINE
     Indication: MALIGNANT OLIGODENDROGLIOMA
     Dosage: UNK (OVER 60 MIN IN THE OUTPATIENT CLINIC, FIFTH DOSES)
     Route: 040

REACTIONS (3)
  - Pleural effusion [Recovering/Resolving]
  - Administration site extravasation [Recovered/Resolved]
  - Interstitial lung disease [Recovering/Resolving]
